FAERS Safety Report 24930133 (Version 1)
Quarter: 2025Q1

REPORT INFORMATION
  Report Type: Spontaneous
  Country: AT (occurrence: AT)
  Receive Date: 20250205
  Receipt Date: 20250205
  Transmission Date: 20250408
  Serious: Yes (Other)
  Sender: TEVA
  Company Number: None

PATIENT
  Age: 75 Year
  Sex: Male

DRUGS (1)
  1. FINASTERIDE [Suspect]
     Active Substance: FINASTERIDE
     Indication: Product used for unknown indication
     Route: 065
     Dates: start: 20230310

REACTIONS (3)
  - Nipple pain [Not Recovered/Not Resolved]
  - Induration [Not Recovered/Not Resolved]
  - Nipple enlargement [Not Recovered/Not Resolved]

NARRATIVE: CASE EVENT DATE: 20240925
